FAERS Safety Report 9698776 (Version 1)
Quarter: 2013Q4

REPORT INFORMATION
  Report Type: Report from Study
  Country: US (occurrence: US)
  Receive Date: 20131120
  Receipt Date: 20131120
  Transmission Date: 20140711
  Serious: Yes (Other)
  Sender: FDA-Public Use
  Company Number: US-ASTRAZENECA-2013SE83675

PATIENT
  Age: 42 Year
  Sex: Female

DRUGS (10)
  1. LISINOPRIL [Suspect]
     Indication: HYPERTENSION
     Route: 048
  2. ATENOLOL [Suspect]
  3. DOCUSATE SODIUM [Concomitant]
  4. POLYETHYLENE GLYCOL [Concomitant]
  5. ASPIRIN [Concomitant]
  6. NIFEDIPINE [Concomitant]
  7. HYDROCHLOROTHIAZIDE [Concomitant]
  8. OXYCODONE [Concomitant]
  9. AMITRIPTYLINE [Concomitant]
  10. DIAZEPAM [Concomitant]

REACTIONS (4)
  - Retroperitoneal lymphadenopathy [Recovered/Resolved]
  - Ascites [Recovered/Resolved]
  - Small bowel angioedema [Recovered/Resolved]
  - Insomnia [Unknown]
